FAERS Safety Report 8284599-3 (Version None)
Quarter: 2012Q2

REPORT INFORMATION
  Report Type: 
  Country: None (occurrence: None)
  Receive Date: 20120413
  Receipt Date: 20111229
  Transmission Date: 20120825
  Serious: No
  Sender: FDA-Public Use
  Company Number: US-ASTRAZENECA-2002UW16428

PATIENT
  Age: 62 Year
  Sex: Female
  Weight: 83.9 kg

DRUGS (10)
  1. VISTARIL [Concomitant]
  2. ASACOL [Concomitant]
  3. NAVANE [Concomitant]
  4. LIPITOR [Concomitant]
  5. SEROQUEL [Suspect]
     Route: 048
  6. FIORICET W/ CODEINE [Concomitant]
  7. PHENERGAN HCL [Concomitant]
  8. NEXIUM [Suspect]
     Indication: GASTROOESOPHAGEAL REFLUX DISEASE
     Route: 048
  9. CELEXA [Concomitant]
  10. KLONOPIN [Concomitant]

REACTIONS (4)
  - INFLUENZA [None]
  - BONE PAIN [None]
  - FEELING JITTERY [None]
  - OROPHARYNGEAL PAIN [None]
